FAERS Safety Report 5280435-8 (Version None)
Quarter: 2007Q1

REPORT INFORMATION
  Report Type: 
  Country: None (occurrence: None)
  Receive Date: 20061229
  Receipt Date: 20060823
  Transmission Date: 20070707
  Serious: Yes (Other)
  Sender: FDA-Public Use
  Company Number: 2006UW16774

PATIENT
  Age: 51 Year
  Sex: Male
  Weight: 79.378 kg

DRUGS (2)
  1. CRESTOR [Suspect]
     Indication: BLOOD CHOLESTEROL INCREASED
     Dosage: 10 MG; PO
     Route: 048
  2. ASPIRIN [Concomitant]

REACTIONS (2)
  - MUSCLE DISORDER [None]
  - VOMITING [None]
